FAERS Safety Report 9460288 (Version 1)
Quarter: 2013Q3

REPORT INFORMATION
  Report Type: Spontaneous
  Country: US (occurrence: US)
  Receive Date: 20130815
  Receipt Date: 20130815
  Transmission Date: 20140515
  Serious: Yes (Other)
  Sender: FDA-Public Use
  Company Number: US-BAXTER-2013BAX020844

PATIENT
  Age: 16 Year
  Sex: Male
  Weight: 82 kg

DRUGS (4)
  1. ADVATE [Suspect]
     Indication: HAEMOPHILIA
     Route: 042
     Dates: start: 20130430, end: 20130515
  2. ADVATE [Suspect]
     Indication: HAEMARTHROSIS
  3. STIMATE [Concomitant]
     Indication: HAEMORRHAGE
     Dosage: 2 PUFFS
     Route: 045
  4. AMICAR [Concomitant]
     Indication: HAEMORRHAGE
     Route: 048

REACTIONS (1)
  - Factor VIII inhibition [Not Recovered/Not Resolved]
